FAERS Safety Report 13789263 (Version 1)
Quarter: 2017Q3

REPORT INFORMATION
  Report Type: Spontaneous
  Country: IT (occurrence: IT)
  Receive Date: 20170725
  Receipt Date: 20170725
  Transmission Date: 20171127
  Serious: Yes (Hospitalization)
  Sender: FDA-Public Use
  Company Number: IT-JNJFOC-20170716507

PATIENT
  Age: 38 Year
  Sex: Male

DRUGS (7)
  1. DINTOINA [Suspect]
     Active Substance: PHENYTOIN SODIUM
     Indication: TRIGEMINAL NEURALGIA
     Route: 048
     Dates: start: 20090301, end: 20120910
  2. DOBETIN [Concomitant]
     Active Substance: CYANOCOBALAMIN
     Indication: PRODUCT USED FOR UNKNOWN INDICATION
     Route: 065
  3. TEGRETOL [Suspect]
     Active Substance: CARBAMAZEPINE
     Indication: TRIGEMINAL NEURALGIA
     Route: 048
     Dates: start: 20090301, end: 20120910
  4. LAMICTAL [Suspect]
     Active Substance: LAMOTRIGINE
     Indication: TRIGEMINAL NEURALGIA
     Route: 065
     Dates: start: 20090301, end: 20120910
  5. PARIET [Suspect]
     Active Substance: RABEPRAZOLE SODIUM
     Indication: PRODUCT USED FOR UNKNOWN INDICATION
     Route: 065
  6. SOLDESAM [Suspect]
     Active Substance: DEXAMETHASONE
     Indication: TRIGEMINAL NEURALGIA
     Route: 065
     Dates: start: 20100101, end: 20120910
  7. TOPAMAX [Suspect]
     Active Substance: TOPIRAMATE
     Indication: TRIGEMINAL NEURALGIA
     Route: 048
     Dates: start: 20090301, end: 20120910

REACTIONS (9)
  - Haemoglobin decreased [Recovering/Resolving]
  - Hyperplasia [Recovering/Resolving]
  - Blood count abnormal [Recovering/Resolving]
  - Gingival hypertrophy [Recovering/Resolving]
  - Soft tissue swelling [Recovering/Resolving]
  - Product use in unapproved indication [Unknown]
  - Off label use [Unknown]
  - Hyponatraemia [Recovering/Resolving]
  - Gamma-glutamyltransferase increased [Recovering/Resolving]

NARRATIVE: CASE EVENT DATE: 20090301
